FAERS Safety Report 10133654 (Version 2)
Quarter: 2014Q2

REPORT INFORMATION
  Report Type: Spontaneous
  Country: US (occurrence: US)
  Receive Date: 20140428
  Receipt Date: 20140605
  Transmission Date: 20141212
  Serious: Yes (Other)
  Sender: FDA-Public Use
  Company Number: US-TEVA-477901USA

PATIENT
  Age: 21 Year
  Sex: Female
  Weight: 91.25 kg

DRUGS (7)
  1. PARAGARD 380A [Suspect]
     Indication: CONTRACEPTION
     Route: 015
     Dates: start: 20140404, end: 20140404
  2. PARAGARD 380A [Suspect]
     Route: 015
     Dates: start: 20140411
  3. TYLENOL [Concomitant]
     Indication: PRODUCT USED FOR UNKNOWN INDICATION
  4. PRENATAL VITAMINS [Concomitant]
     Indication: POSTPARTUM STATE
  5. IBUPROFEN [Concomitant]
     Indication: PRODUCT USED FOR UNKNOWN INDICATION
  6. ALBUTEROL [Concomitant]
     Indication: PRODUCT USED FOR UNKNOWN INDICATION
  7. DOCUSATE [Concomitant]
     Indication: PRODUCT USED FOR UNKNOWN INDICATION

REACTIONS (2)
  - Device dislocation [Recovered/Resolved]
  - Dizziness [Recovered/Resolved]
